FAERS Safety Report 6668868-6 (Version None)
Quarter: 2010Q2

REPORT INFORMATION
  Report Type: 
  Country: None (occurrence: None)
  Receive Date: 20100406
  Receipt Date: 20100326
  Transmission Date: 20101027
  Serious: Yes (Hospitalization)
  Sender: FDA-Public Use
  Company Number: JP-ROCHE-642632

PATIENT
  Sex: Female

DRUGS (9)
  1. RIBAVIRIN [Suspect]
     Route: 048
     Dates: start: 20080401, end: 20080819
  2. PEGINTERFERON ALFA-2A [Suspect]
     Route: 058
     Dates: start: 20080401, end: 20080819
  3. MUCOSTA [Concomitant]
     Dosage: TAKEN AS NEEDED: 100MG/DAY
     Route: 048
     Dates: start: 20080404, end: 20080414
  4. FAMOTIDINE [Concomitant]
     Route: 048
  5. EUGLUCON [Concomitant]
     Route: 048
  6. VITANEURIN [Concomitant]
     Route: 048
  7. MOBIC [Concomitant]
     Route: 048
  8. EURAX [Concomitant]
     Route: 061
     Dates: start: 20080422, end: 20080531
  9. LOXONIN [Concomitant]
     Dosage: TAKEN AS NEEDED: 60MG/DAY
     Route: 048
     Dates: start: 20080404, end: 20080414

REACTIONS (4)
  - DIABETIC RETINOPATHY [None]
  - NEUTROPHIL COUNT DECREASED [None]
  - PRURITUS [None]
  - RETINAL HAEMORRHAGE [None]
